FAERS Safety Report 12999430 (Version 1)
Quarter: 2016Q4

REPORT INFORMATION
  Report Type: Spontaneous
  Country: US (occurrence: US)
  Receive Date: 20161205
  Receipt Date: 20161205
  Transmission Date: 20170207
  Serious: Yes (Other)
  Sender: FDA-Public Use
  Company Number: US-MEDA-2016110050

PATIENT
  Age: 40 Year
  Sex: Male

DRUGS (9)
  1. ONFI [Suspect]
     Active Substance: CLOBAZAM
     Indication: SEIZURE
  2. ATENOLOL. [Concomitant]
     Active Substance: ATENOLOL
  3. GABAPENTIN. [Suspect]
     Active Substance: GABAPENTIN
  4. SOMA [Suspect]
     Active Substance: CARISOPRODOL
  5. ONFI [Suspect]
     Active Substance: CLOBAZAM
     Indication: SEIZURE
     Dates: start: 20161011
  6. CLONIDINE. [Concomitant]
     Active Substance: CLONIDINE
  7. GABAPENTIN. [Suspect]
     Active Substance: GABAPENTIN
  8. GABAPENTIN. [Suspect]
     Active Substance: GABAPENTIN
  9. AMLODIPINE [Concomitant]
     Active Substance: AMLODIPINE BESYLATE

REACTIONS (3)
  - Vomiting [Unknown]
  - Abdominal discomfort [Unknown]
  - Seizure [Not Recovered/Not Resolved]
